FAERS Safety Report 7907251-X (Version None)
Quarter: 2011Q4

REPORT INFORMATION
  Report Type: 
  Country: None (occurrence: None)
  Receive Date: 20111109
  Receipt Date: 20111026
  Transmission Date: 20120403
  Serious: Yes (Life-Threatening, Hospitalization, Other)
  Sender: FDA-Public Use
  Company Number: 2011S1001073

PATIENT
  Age: 40 Year
  Sex: Male
  Weight: 56 kg

DRUGS (6)
  1. LIVALO [Suspect]
     Indication: DYSLIPIDAEMIA
     Dosage: 2 MG;1X;PO
     Route: 048
     Dates: start: 20100609, end: 20100702
  2. TICLOPIDINE HCL [Suspect]
     Indication: ACUTE MYOCARDIAL INFARCTION
     Dosage: 100MG, BID,PO
     Route: 048
  3. PLETAL [Concomitant]
  4. LANSOPRAZOLE [Concomitant]
  5. ASPIRIN [Concomitant]
  6. CONIEL [Concomitant]

REACTIONS (8)
  - DECREASED APPETITE [None]
  - DYSPEPSIA [None]
  - BLOOD BILIRUBIN INCREASED [None]
  - HEPATIC FUNCTION ABNORMAL [None]
  - MALAISE [None]
  - LIVER DISORDER [None]
  - JAUNDICE [None]
  - ERYTHEMA [None]
